FAERS Safety Report 20897297 (Version 2)
Quarter: 2022Q2

REPORT INFORMATION
  Report Type: Spontaneous
  Country: PR (occurrence: PR)
  Receive Date: 20220531
  Receipt Date: 20220609
  Transmission Date: 20220720
  Serious: Yes (Death, Other)
  Sender: FDA-Public Use
  Company Number: PR-PFIZER INC-2019433817

PATIENT
  Age: 74 Year
  Sex: Female
  Weight: 88.9 kg

DRUGS (2)
  1. TOVIAZ [Suspect]
     Active Substance: FESOTERODINE FUMARATE
     Indication: Urinary incontinence
     Dosage: 8 MG, 1X/DAY (IN THE MORNING AFTER BREAKFAST)
     Route: 048
  2. ANASTROZOLE [Concomitant]
     Active Substance: ANASTROZOLE
     Indication: Breast cancer female
     Dosage: UNK, 1X/DAY

REACTIONS (1)
  - Death [Fatal]
